FAERS Safety Report 5483867-8 (Version None)
Quarter: 2007Q4

REPORT INFORMATION
  Report Type: 
  Country: None (occurrence: None)
  Receive Date: 20071012
  Receipt Date: 20071002
  Transmission Date: 20080405
  Serious: Yes (Other)
  Sender: FDA-Public Use
  Company Number: US-JNJFOC-20071001262

PATIENT
  Sex: Male

DRUGS (2)
  1. ULTRACET [Suspect]
     Indication: CARPAL TUNNEL SYNDROME
     Route: 048
  2. VIOXX [Concomitant]
     Indication: CARPAL TUNNEL SYNDROME
     Route: 048

REACTIONS (2)
  - CONFUSIONAL STATE [None]
  - MUSCULAR WEAKNESS [None]
